FAERS Safety Report 7928345-9 (Version None)
Quarter: 2011Q4

REPORT INFORMATION
  Report Type: 
  Country: None (occurrence: None)
  Receive Date: 20111118
  Receipt Date: 20111115
  Transmission Date: 20120403
  Serious: Yes (Death, Life-Threatening, Hospitalization)
  Sender: FDA-Public Use
  Company Number: US-SANOFI-AVENTIS-2011SA065372

PATIENT
  Age: 65 Year
  Sex: Female
  Weight: 59.36 kg

DRUGS (4)
  1. TRASTUZUMAB [Suspect]
     Route: 042
     Dates: start: 20110609
  2. DOCETAXEL [Suspect]
     Route: 042
     Dates: start: 20110901
  3. DOCETAXEL [Suspect]
     Route: 042
     Dates: start: 20110609
  4. TRASTUZUMAB [Suspect]
     Route: 042
     Dates: start: 20110901

REACTIONS (1)
  - LUNG INFILTRATION [None]
